FAERS Safety Report 25196440 (Version 1)
Quarter: 2025Q2

REPORT INFORMATION
  Report Type: Spontaneous
  Country: US (occurrence: US)
  Receive Date: 20250415
  Receipt Date: 20250415
  Transmission Date: 20250716
  Serious: No
  Sender: MERCK SHARP AND DOHME
  Company Number: US-009507513-2268914

PATIENT
  Sex: Female

DRUGS (1)
  1. KEYTRUDA [Suspect]
     Active Substance: PEMBROLIZUMAB
     Indication: Head and neck cancer
     Dosage: EVERY 3 WEEKS
     Route: 042
     Dates: start: 202408

REACTIONS (2)
  - Oncologic complication [Unknown]
  - Lymphadenopathy [Unknown]
